FAERS Safety Report 21159566 (Version 4)
Quarter: 2022Q4

REPORT INFORMATION
  Report Type: Spontaneous
  Country: US (occurrence: US)
  Receive Date: 20220802
  Receipt Date: 20221208
  Transmission Date: 20230113
  Serious: No
  Sender: FDA-Public Use
  Company Number: US-PFIZER INC-PV202200026668

PATIENT
  Age: 15 Year
  Sex: Male

DRUGS (2)
  1. GENOTROPIN [Suspect]
     Active Substance: SOMATROPIN
     Dosage: 2.8 AND 3.0 MG ALTERNATING
     Dates: start: 2018
  2. GENOTROPIN [Suspect]
     Active Substance: SOMATROPIN
     Dosage: UNK, ALTERNATE DAY(ALTERNATES BETWEEN 3.O + 3.2 EVERY OTHER DAY)

REACTIONS (2)
  - Drug dose omission by device [Unknown]
  - Device issue [Unknown]
